FAERS Safety Report 14020119 (Version 2)
Quarter: 2017Q4

REPORT INFORMATION
  Report Type: Spontaneous
  Country: US (occurrence: US)
  Receive Date: 20170928
  Receipt Date: 20171018
  Transmission Date: 20180321
  Serious: Yes (Other)
  Sender: FDA-Public Use
  Company Number: US-BAUSCH-BL-2017-027264

PATIENT
  Age: 66 Year
  Sex: Female

DRUGS (2)
  1. APRISO [Suspect]
     Active Substance: MESALAMINE
     Indication: CROHN^S DISEASE
     Dosage: TABLETS 0.375G ORALLY DAILY
     Route: 048
     Dates: start: 20170707, end: 2017
  2. APRISO [Suspect]
     Active Substance: MESALAMINE
     Dosage: 2 TABLETS 0.375 GRAM ORALLY DAILY
     Route: 048
     Dates: start: 2017

REACTIONS (3)
  - Treatment noncompliance [Unknown]
  - Off label use [Not Recovered/Not Resolved]
  - Crohn^s disease [Not Recovered/Not Resolved]

NARRATIVE: CASE EVENT DATE: 2017
